FAERS Safety Report 16044374 (Version 1)
Quarter: 2019Q1

REPORT INFORMATION
  Report Type: Spontaneous
  Country: JP (occurrence: JP)
  Receive Date: 20190306
  Receipt Date: 20190306
  Transmission Date: 20190418
  Serious: Yes (Hospitalization, Other)
  Sender: FDA-Public Use
  Company Number: JP-ALLERGAN-1908496US

PATIENT
  Sex: Female

DRUGS (1)
  1. BOTOX [Suspect]
     Active Substance: ONABOTULINUMTOXINA
     Indication: PRODUCT USED FOR UNKNOWN INDICATION
     Dosage: UNK UNK, SINGLE
     Route: 030

REACTIONS (6)
  - Dacryocystitis [Recovering/Resolving]
  - Dacryolith [Recovering/Resolving]
  - Swelling of eyelid [Recovering/Resolving]
  - Eye discharge [Recovering/Resolving]
  - Eye pain [Recovering/Resolving]
  - Actinomyces test positive [Recovering/Resolving]
